FAERS Safety Report 7462250-X (Version None)
Quarter: 2011Q2

REPORT INFORMATION
  Report Type: 
  Country: None (occurrence: None)
  Receive Date: 20110506
  Receipt Date: 20110427
  Transmission Date: 20111010
  Serious: Yes (Hospitalization)
  Sender: FDA-Public Use
  Company Number: FR-PFIZER INC-2011096802

PATIENT
  Age: 72 Year
  Sex: Male

DRUGS (8)
  1. XATRAL [Suspect]
  2. CLINDAMYCIN PHOSPHATE [Suspect]
     Indication: DEVICE RELATED INFECTION
     Dosage: 225 MG DAILY
     Route: 048
  3. ALLOPURINOL [Suspect]
     Dosage: 300 MG, 1 IN 2 D
     Route: 048
  4. LOVENOX [Suspect]
  5. COLCHICINE [Suspect]
     Dosage: 1 DOSAGE FORM
     Route: 048
     Dates: end: 20110401
  6. OLMESARTAN MEDOXOMIL [Suspect]
     Dosage: 40 MG, UNK
     Route: 048
     Dates: end: 20110401
  7. FUCIDINE CAP [Suspect]
     Indication: DEVICE RELATED INFECTION
     Dosage: 1500 MG DAILY
     Route: 048
  8. PANTOPRAZOLE [Suspect]
     Dosage: UNK
     Dates: end: 20110401

REACTIONS (1)
  - RENAL FAILURE ACUTE [None]
